FAERS Safety Report 4377695-4 (Version None)
Quarter: 2004Q2

REPORT INFORMATION
  Report Type: 
  Country: None (occurrence: None)
  Receive Date: 20040608
  Receipt Date: 20040527
  Transmission Date: 20050107
  Serious: Yes (Hospitalization)
  Sender: FDA-Public Use
  Company Number: 2004216009FR

PATIENT
  Age: 74 Year
  Sex: Female

DRUGS (6)
  1. CELEBREX [Suspect]
     Dosage: ORAL
     Route: 048
     Dates: start: 20040310, end: 20040401
  2. TEGRETOL [Suspect]
     Dosage: ORAL
     Route: 048
     Dates: start: 20040310, end: 20040401
  3. ALDACTAZINE (ALTIZIDE) [Concomitant]
  4. LEXOMIL [Concomitant]
  5. DAFALGAN [Concomitant]
  6. ISKEDYL (RAUBASINE) [Concomitant]

REACTIONS (1)
  - THROMBOCYTOPENIC PURPURA [None]
